FAERS Safety Report 9104958 (Version 1)
Quarter: 2013Q1

REPORT INFORMATION
  Report Type: Spontaneous
  Country: US (occurrence: US)
  Receive Date: 20130219
  Receipt Date: 20130219
  Transmission Date: 20140127
  Serious: Yes (Death)
  Sender: FDA-Public Use
  Company Number: US-JNJFOC-20130209378

PATIENT
  Age: 75 Year
  Sex: Male

DRUGS (3)
  1. REOPRO [Suspect]
     Indication: THROMBOSIS PROPHYLAXIS
     Route: 042
     Dates: start: 20130121
  2. EFFIENT [Suspect]
     Indication: THROMBOSIS PROPHYLAXIS
     Dosage: APPROXIMATELY 2 YEARS AGO, MAINTENANCE DOSE 10MG
     Route: 065
  3. ASPIRIN [Concomitant]
     Route: 065

REACTIONS (1)
  - Haemorrhage intracranial [Fatal]
